FAERS Safety Report 21036315 (Version 1)
Quarter: 2022Q3

REPORT INFORMATION
  Report Type: Spontaneous
  Country: MY (occurrence: MY)
  Receive Date: 20220701
  Receipt Date: 20220701
  Transmission Date: 20221027
  Serious: Yes (Hospitalization)
  Sender: FDA-Public Use
  Company Number: MY-009507513-2206MYS008671

PATIENT
  Age: 70 Year
  Sex: Female

DRUGS (1)
  1. PEMBROLIZUMAB [Suspect]
     Active Substance: PEMBROLIZUMAB
     Indication: Lung adenocarcinoma
     Dosage: 6 CYCLES, CYCLICAL

REACTIONS (1)
  - Adrenocorticotropic hormone deficiency [Recovering/Resolving]
